FAERS Safety Report 24165037 (Version 1)
Quarter: 2024Q3

REPORT INFORMATION
  Report Type: Spontaneous
  Country: GB (occurrence: GB)
  Receive Date: 20240802
  Receipt Date: 20240802
  Transmission Date: 20241017
  Serious: Yes (Other)
  Sender: GLAXOSMITHKLINE
  Company Number: None

PATIENT

DRUGS (4)
  1. ZYBAN [Suspect]
     Active Substance: BUPROPION HYDROCHLORIDE
     Indication: Ex-tobacco user
     Dosage: UNK
     Route: 065
     Dates: start: 20240701
  2. SERTRALINE [Concomitant]
     Active Substance: SERTRALINE HYDROCHLORIDE
     Indication: Product used for unknown indication
     Dosage: UNK
     Route: 065
  3. BECLOMETHASONE DIPROPIONATE\FORMOTEROL FUMARATE\GLYCOPYRROLATE [Concomitant]
     Active Substance: BECLOMETHASONE DIPROPIONATE\FORMOTEROL FUMARATE\GLYCOPYRROLATE
     Indication: Product used for unknown indication
     Dosage: UNK
     Route: 065
  4. FEXOFENADINE [Concomitant]
     Active Substance: FEXOFENADINE HYDROCHLORIDE
     Indication: Product used for unknown indication
     Dosage: UNK
     Route: 065

REACTIONS (4)
  - Hallucination, auditory [Not Recovered/Not Resolved]
  - Headache [Not Recovered/Not Resolved]
  - Sleep paralysis [Unknown]
  - Vision blurred [Not Recovered/Not Resolved]
